FAERS Safety Report 9834519 (Version 1)
Quarter: 2014Q1

REPORT INFORMATION
  Report Type: Spontaneous
  Country: MX (occurrence: MX)
  Receive Date: 20140122
  Receipt Date: 20140122
  Transmission Date: 20141002
  Serious: Yes (Other)
  Sender: FDA-Public Use
  Company Number: PHHY2014MX007223

PATIENT
  Age: 78 Year
  Sex: Female
  Weight: 64 kg

DRUGS (4)
  1. DIOVAN [Suspect]
     Indication: HYPERTENSION
     Dosage: 2 DF(80MG), DAILY
     Route: 048
     Dates: end: 20140120
  2. DIOVAN [Suspect]
     Dosage: 1 DF(80MG), Q12H
     Route: 048
     Dates: start: 20140120
  3. HYDROCHLOROTHIAZIDE [Concomitant]
     Indication: HYPERTENSION
     Dosage: 0.25 DF(25MG), QD
     Route: 048
     Dates: start: 2012
  4. AMLODIPINE [Concomitant]
     Indication: HYPERTENSION
     Dosage: 1 DF(5MG), DAILY
     Route: 048
     Dates: start: 20131129

REACTIONS (5)
  - Diverticulum oesophageal [Not Recovered/Not Resolved]
  - Gastrooesophageal reflux disease [Not Recovered/Not Resolved]
  - Blood cholesterol increased [Recovering/Resolving]
  - Dizziness [Recovered/Resolved]
  - Blood pressure increased [Recovered/Resolved]
